FAERS Safety Report 9654368 (Version 2)
Quarter: 2013Q4

REPORT INFORMATION
  Report Type: Spontaneous
  Country: GB (occurrence: GB)
  Receive Date: 20131029
  Receipt Date: 20131029
  Transmission Date: 20140711
  Serious: Yes (Other)
  Sender: FDA-Public Use
  Company Number: GB-ACTAVIS-2012-23593

PATIENT
  Age: 50 Year
  Sex: Female

DRUGS (1)
  1. DOCETAXEL ACTAVIS [Suspect]
     Indication: BREAST CANCER
     Dosage: 170 MG, UNKNOWN; DOSE WAS GIVEN VIA A PERIPHERAL CANNULA IN 250ML SODIUM CHLORIDE 0.9% OVER 60 MIN
     Route: 042
     Dates: start: 20110919, end: 20110919

REACTIONS (3)
  - Injection site pain [Recovering/Resolving]
  - Phlebitis [Recovering/Resolving]
  - Product substitution issue [Unknown]
